FAERS Safety Report 5359612-3 (Version None)
Quarter: 2007Q2

REPORT INFORMATION
  Report Type: 
  Country: None (occurrence: None)
  Receive Date: 20070530
  Receipt Date: 20061031
  Transmission Date: 20071010
  Serious: Yes (Other)
  Sender: FDA-Public Use
  Company Number: US200606002525

PATIENT
  Age: 42 Year
  Sex: Male
  Weight: 110.7 kg

DRUGS (5)
  1. ZYPREXA [Suspect]
     Dosage: 2.5 MG, 5 MG, 7.5 MG,
     Dates: start: 20041201, end: 20050401
  2. ZYPREXA [Suspect]
     Dosage: 2.5 MG, 5 MG, 7.5 MG,
     Dates: start: 20041201, end: 20050401
  3. ZYPREXA [Suspect]
     Dosage: 2.5 MG, 5 MG, 7.5 MG,
     Dates: start: 20041201, end: 20050401
  4. RISPERIDON (RISPERIDONE) [Concomitant]
  5. DOXEPIN HCL [Concomitant]

REACTIONS (3)
  - DIABETES MELLITUS [None]
  - METABOLIC DISORDER [None]
  - PANCREATITIS [None]
